FAERS Safety Report 9856989 (Version 1)
Quarter: 2014Q1

REPORT INFORMATION
  Report Type: Spontaneous
  Country: US (occurrence: US)
  Receive Date: 20140130
  Receipt Date: 20140130
  Transmission Date: 20141002
  Serious: Yes (Other)
  Sender: FDA-Public Use
  Company Number: US-GE HEALTHCARE MEDICAL DIAGNOSTICS-OSCN-PR-1312S-0150

PATIENT
  Sex: Female

DRUGS (5)
  1. GADOLINIUM (UNSPECIFIED) [Suspect]
     Indication: PRODUCT USED FOR UNKNOWN INDICATION
     Dates: start: 20070108, end: 20070108
  2. MAGNEVIST [Suspect]
     Indication: CELLULITIS
     Dates: start: 20040422, end: 20040422
  3. MAGNEVIST [Suspect]
     Indication: GANGRENE
     Dates: start: 20050405, end: 20050405
  4. MAGNEVIST [Suspect]
     Indication: OEDEMA
     Dates: start: 20060201, end: 20060201
  5. MAGNEVIST [Suspect]
     Dates: start: 20060321, end: 20060321

REACTIONS (1)
  - Nephrogenic systemic fibrosis [Not Recovered/Not Resolved]
